FAERS Safety Report 22381641 (Version 11)
Quarter: 2024Q4

REPORT INFORMATION
  Report Type: Spontaneous
  Country: ES (occurrence: ES)
  Receive Date: 20230530
  Receipt Date: 20241104
  Transmission Date: 20250114
  Serious: Yes (Death, Other)
  Sender: CELLTRION
  Company Number: ES-CELLTRION INC.-2023ES010884

PATIENT

DRUGS (58)
  1. TRUXIMA [Suspect]
     Active Substance: RITUXIMAB-ABBS
     Indication: Diffuse large B-cell lymphoma stage IV
     Dosage: UNK UNK, CYCLIC (1ST LINE, 6 CYCLES AS A PART OF RCHOP REGIMEN)/1ST LINE, 6 CYCLES AS A PART OF RCHO
     Route: 065
  2. TRUXIMA [Suspect]
     Active Substance: RITUXIMAB-ABBS
     Indication: Diffuse large B-cell lymphoma
     Dosage: UNK UNK, CYCLIC (3RD LINE, 1 CYCLE, BRIDGE THERAPY)/3RD LINE, 1 CYCLE, BRIDGE THERAPY
     Route: 065
  3. TRUXIMA [Suspect]
     Active Substance: RITUXIMAB-ABBS
     Dosage: UNK UNK, CYCLIC (5TH LINE AS A PART OF R-MTX-ARA-C REGIMEN)/5TH LINE AS A PART OF R-MTX-ARA-C REGIME
     Route: 065
  4. IMBRUVICA [Suspect]
     Active Substance: IBRUTINIB
     Indication: Diffuse large B-cell lymphoma stage IV
     Dosage: UNK UNK, CYCLIC (6TH LINE, 4 CYCLES)/TIME INTERVAL: CYCLICAL: UNK, CYCLIC, 6TH LINE, 4 CYCLES
     Route: 048
  5. IMBRUVICA [Suspect]
     Active Substance: IBRUTINIB
     Indication: Diffuse large B-cell lymphoma
  6. PREDNISONE [Suspect]
     Active Substance: PREDNISONE
     Indication: Diffuse large B-cell lymphoma
     Dosage: UNK,UNK, UNKNOWN FREQ.(1ST LINE, 6 CYCLES AS A PART OF RCHOP REGIMEN), DOSAGE FORM: SOLUTION/UNK, UN
     Route: 065
  7. PREDNISONE [Suspect]
     Active Substance: PREDNISONE
     Indication: Diffuse large B-cell lymphoma stage IV
     Dosage: UNK, UNKNOWN FREQ.(1ST LINE, 6 CYCLES AS A PART OF RCHOP REGIMEN)
     Route: 065
  8. MOSUNETUZUMAB [Suspect]
     Active Substance: MOSUNETUZUMAB
     Indication: Diffuse large B-cell lymphoma
     Dosage: TIME INTERVAL: CYCLICAL: UNK, CYCLIC, 2ND LINE, 8 CYCLES/UNK, CYCLIC (2ND LINE, 8 CYCLES)
     Route: 050
  9. MOSUNETUZUMAB [Suspect]
     Active Substance: MOSUNETUZUMAB
     Indication: Diffuse large B-cell lymphoma stage IV
     Dosage: UNK,UNK, CYCLIC, 2ND LINE, 8 CYCLES
     Route: 065
  10. MOSUNETUZUMAB [Suspect]
     Active Substance: MOSUNETUZUMAB
     Indication: Diffuse large B-cell lymphoma
  11. METHOTREXATE [Suspect]
     Active Substance: METHOTREXATE
     Indication: Diffuse large B-cell lymphoma
     Dosage: UNK UNK, CYCLIC (5TH LINE AS A PART OF R-MTX-ARA-C REGIMEN)/TIME INTERVAL: CYCLICAL: UNK, CYCLIC, 5T
     Route: 065
  12. METHOTREXATE [Suspect]
     Active Substance: METHOTREXATE
     Indication: Diffuse large B-cell lymphoma stage IV
  13. DEXAMETHASONE [Suspect]
     Active Substance: DEXAMETHASONE
     Indication: Diffuse large B-cell lymphoma
     Dosage: UNK UNK, UNKNOWN FREQ
     Route: 065
  14. DEXAMETHASONE [Suspect]
     Active Substance: DEXAMETHASONE
     Indication: Diffuse large B-cell lymphoma stage IV
  15. CYTARABINE [Suspect]
     Active Substance: CYTARABINE
     Indication: Diffuse large B-cell lymphoma
     Dosage: TIME INTERVAL: CYCLICAL: UNK, CYCLIC, 5TH LINE AS A PART OF R-MTX-ARA-C REGIMEN/UNK UNK, CYCLIC (5TH
     Route: 065
  16. CYTARABINE [Suspect]
     Active Substance: CYTARABINE
     Indication: Diffuse large B-cell lymphoma stage IV
     Dosage: TIME INTERVAL: CYCLICAL: UNK, CYCLIC, 5TH LINE AS A PART OF R-MTX-ARA-C REGIMEN/UNK UNK, CYCLIC (5TH
     Route: 065
  17. EPIRUBICIN [Suspect]
     Active Substance: EPIRUBICIN
     Indication: Diffuse large B-cell lymphoma
     Dosage: TIME INTERVAL: CYCLICAL: UNK, CYCLIC, 2ND LINE, 8 CYCLES AS A PART OF EC REGIMEN/UNK UNK, CYCLIC (2N
     Route: 050
  18. EPIRUBICIN [Suspect]
     Active Substance: EPIRUBICIN
     Indication: Diffuse large B-cell lymphoma stage IV
     Dosage: UNK, CYCLIC, 2ND LINE, 8 CYCLES AS A PART OF EC REGIMEN
     Route: 065
  19. EPIRUBICIN [Suspect]
     Active Substance: EPIRUBICIN
     Indication: Diffuse large B-cell lymphoma
     Dosage: TIME INTERVAL: CYCLICAL: UNK, CYCLIC, 2ND LINE, 8 CYCLES AS A PART OF EC REGIMEN
     Route: 050
  20. BENDAMUSTINE HYDROCHLORIDE [Suspect]
     Active Substance: BENDAMUSTINE HYDROCHLORIDE
     Indication: Diffuse large B-cell lymphoma stage IV
     Dosage: UTIME INTERVAL: CYCLICAL: UNK, CYCLIC NK, CYCLIC (3RD LINE, 1 CYCLE, BRIDGE THERAPY), DOSAGE FORM: P
     Route: 042
  21. BENDAMUSTINE HYDROCHLORIDE [Suspect]
     Active Substance: BENDAMUSTINE HYDROCHLORIDE
     Indication: Diffuse large B-cell lymphoma
     Dosage: UNK, CYCLIC 3RD LINE
     Route: 042
  22. BENDAMUSTINE HYDROCHLORIDE [Suspect]
     Active Substance: BENDAMUSTINE HYDROCHLORIDE
     Dosage: TIME INTERVAL: CYCLICAL: UNK, CYCLIC 3RD LINE, 1 CYCLE, BRIDGE THERAPY), DOSAGE FORM: POWDER FOR CON
     Route: 042
  23. BENDAMUSTINE HYDROCHLORIDE [Suspect]
     Active Substance: BENDAMUSTINE HYDROCHLORIDE
     Indication: Diffuse large B-cell lymphoma
     Dosage: UNK, CYCLIC (3RD LINE, 1 CYCLE, BRIDGE THERAPY), DOSAGE FORM: POWDER FOR CONCENTRATE FOR SOLUTION...
     Route: 042
  24. BENDAMUSTINE HYDROCHLORIDE [Suspect]
     Active Substance: BENDAMUSTINE HYDROCHLORIDE
     Dosage: UNK, CYCLIC 3RD LINE
     Route: 042
  25. DOXORUBICIN HYDROCHLORIDE [Suspect]
     Active Substance: DOXORUBICIN HYDROCHLORIDE
     Indication: Diffuse large B-cell lymphoma
     Dosage: TIME INTERVAL: CYCLICAL: UNK, CYCLIC, 1ST LINE, 6 CYCLES AS A PART OF RCHOP REGIMEN/UNK, CYCLIC (1ST
     Route: 065
  26. DOXORUBICIN HYDROCHLORIDE [Suspect]
     Active Substance: DOXORUBICIN HYDROCHLORIDE
     Indication: Diffuse large B-cell lymphoma stage IV
     Dosage: 1ST LINE, 6 CYCLES AS A PART OF RCHOP REGIMEN
     Route: 065
  27. VINCRISTINE SULFATE [Suspect]
     Active Substance: VINCRISTINE SULFATE
     Indication: Diffuse large B-cell lymphoma
     Dosage: UNK UNK, UNKNOWN FREQ.(1ST LINE, 6 CYCLES AS A PART OF RCHOP REGIMEN)
     Route: 065
  28. VINCRISTINE SULFATE [Suspect]
     Active Substance: VINCRISTINE SULFATE
     Indication: Diffuse large B-cell lymphoma stage IV
  29. GENOXAL [Suspect]
     Active Substance: CYCLOPHOSPHAMIDE
     Indication: Diffuse large B-cell lymphoma stage IV
     Dosage: 1ST LINE, 6 CYCLES AS A PART OF RCHOP REGIMEN
     Route: 065
  30. GENOXAL [Suspect]
     Active Substance: CYCLOPHOSPHAMIDE
     Indication: Diffuse large B-cell lymphoma
     Dosage: 2ND LINE, 8 CYCLES AS A PART OF EC REGIMEN
     Route: 065
  31. TEMOZOLOMIDE [Suspect]
     Active Substance: TEMOZOLOMIDE
     Indication: Diffuse large B-cell lymphoma
     Dosage: UNK UNK, CYCLIC (6TH LINE, 4 CYCLES)
     Route: 065
  32. TEMOZOLOMIDE [Suspect]
     Active Substance: TEMOZOLOMIDE
     Indication: Diffuse large B-cell lymphoma stage IV
  33. BENDAMUSTINE [Suspect]
     Active Substance: BENDAMUSTINE
     Indication: Diffuse large B-cell lymphoma
     Dosage: UNK, CYCLIC (3RD LINE, 1 CYCLE, BRIDGE THERAPY), DOSAGE FORM: POWDER FOR CONCENTRATE FOR SOLUTION FO
     Route: 042
  34. BENDAMUSTINE [Suspect]
     Active Substance: BENDAMUSTINE
     Indication: Diffuse large B-cell lymphoma stage IV
     Dosage: 3RD LINE, 1 CYCLE, BRIDGE THERAPY
     Route: 065
  35. CYCLOPHOSPHAMIDE [Suspect]
     Active Substance: CYCLOPHOSPHAMIDE
     Indication: Diffuse large B-cell lymphoma
     Dosage: UNK UNK, CYCLIC (1ST LINE, 6 CYCLES AS A PART OF RCHOP REGIMEN)
     Route: 065
  36. CYCLOPHOSPHAMIDE [Suspect]
     Active Substance: CYCLOPHOSPHAMIDE
     Indication: Diffuse large B-cell lymphoma stage IV
     Dosage: UNK UNK, CYCLIC (2ND LINE, 8 CYCLES AS A PART OF EC REGIMEN)
     Route: 065
  37. IBRUTINIB [Suspect]
     Active Substance: IBRUTINIB
     Indication: Diffuse large B-cell lymphoma
     Dosage: UNK UNK, CYCLIC (6TH LINE, 4 CYCLES)
     Route: 065
  38. IBRUTINIB [Suspect]
     Active Substance: IBRUTINIB
     Indication: Diffuse large B-cell lymphoma stage IV
  39. TEMODAL [Suspect]
     Active Substance: TEMOZOLOMIDE
     Indication: Diffuse large B-cell lymphoma
     Dosage: UNK UNK, CYCLIC (6TH LINE, 4 CYCLES)/6TH LINE, 4 CYCLES
     Route: 065
  40. TEMODAL [Suspect]
     Active Substance: TEMOZOLOMIDE
     Indication: Diffuse large B-cell lymphoma stage IV
  41. VINCRISTINE [Suspect]
     Active Substance: VINCRISTINE
     Indication: Diffuse large B-cell lymphoma
     Dosage: 1ST LINE, 6 CYCLES AS A PART OF RCHOP REGIMEN
     Route: 065
  42. DOXORUBICIN [Suspect]
     Active Substance: DOXORUBICIN
     Indication: Diffuse large B-cell lymphoma stage IV
     Dosage: UNK, CYCLIC, 1ST LINE, 6 CYCLES AS A PART OF RCHOP REGIMEN
     Route: 065
  43. DOXORUBICIN [Suspect]
     Active Substance: DOXORUBICIN
     Indication: Diffuse large B-cell lymphoma
  44. METHOTREXATE SODIUM [Suspect]
     Active Substance: METHOTREXATE SODIUM
     Indication: Diffuse large B-cell lymphoma stage IV
     Dosage: UNK, CYCLIC, 5TH LINE AS A PART OF R-MTX-ARA-C REGIMEN
     Route: 065
  45. METHOTREXATE SODIUM [Suspect]
     Active Substance: METHOTREXATE SODIUM
     Indication: Diffuse large B-cell lymphoma
  46. VINCRISTINE SULFATE [Suspect]
     Active Substance: VINCRISTINE SULFATE
     Indication: Diffuse large B-cell lymphoma
     Dosage: 1ST LINE, 6 CYCLES AS A PART OF RCHOP REGIMEN
     Route: 065
  47. VINCRISTINE SULFATE [Suspect]
     Active Substance: VINCRISTINE SULFATE
     Indication: Diffuse large B-cell lymphoma stage IV
  48. DOXORUBICIN HYDROCHLORIDE [Suspect]
     Active Substance: DOXORUBICIN HYDROCHLORIDE
     Indication: Diffuse large B-cell lymphoma stage IV
     Dosage: UNK, CYCLIC, 1ST LINE, 6 CYCLES AS A PART OF RCHOP REGIMEN
     Route: 065
  49. DOXORUBICIN HYDROCHLORIDE [Suspect]
     Active Substance: DOXORUBICIN HYDROCHLORIDE
     Indication: Diffuse large B-cell lymphoma
  50. DOXORUBICIN HYDROCHLORIDE [Suspect]
     Active Substance: DOXORUBICIN HYDROCHLORIDE
     Indication: Diffuse large B-cell lymphoma stage IV
     Dosage: 1ST LINE, 6 CYCLES AS A PART OF RCHOP REGIMEN
     Route: 065
  51. DOXORUBICIN HYDROCHLORIDE [Suspect]
     Active Substance: DOXORUBICIN HYDROCHLORIDE
     Indication: Diffuse large B-cell lymphoma
  52. VINCRISTINE [Suspect]
     Active Substance: VINCRISTINE
     Indication: Diffuse large B-cell lymphoma
     Dosage: 1ST LINE, 6 CYCLES AS A PART OF RCHOP REGIMEN
     Route: 065
  53. VINCRISTINE [Suspect]
     Active Substance: VINCRISTINE
     Indication: Diffuse large B-cell lymphoma stage IV
  54. VINCRISTINE [Suspect]
     Active Substance: VINCRISTINE
     Indication: Diffuse large B-cell lymphoma stage IV
     Dosage: 1ST LINE, 6 CYCLES AS A PART OF RCHOP REGIMEN
     Route: 065
  55. VINCRISTINE [Suspect]
     Active Substance: VINCRISTINE
     Indication: Diffuse large B-cell lymphoma
  56. DEXAMETHASONE ACETATE [Suspect]
     Active Substance: DEXAMETHASONE ACETATE
     Indication: Diffuse large B-cell lymphoma stage IV
     Route: 065
  57. DOXORUBICIN HYDROCHLORIDE [Suspect]
     Active Substance: DOXORUBICIN HYDROCHLORIDE
     Indication: Diffuse large B-cell lymphoma stage IV
     Dosage: TIME INTERVAL: CYCLICAL: UNK, CYCLIC, 1ST LINE, 6 CYCLES AS A PART OF RCHOP REGIMEN
     Route: 065
  58. DOXORUBICIN HYDROCHLORIDE [Suspect]
     Active Substance: DOXORUBICIN HYDROCHLORIDE
     Indication: Diffuse large B-cell lymphoma

REACTIONS (16)
  - Death [Fatal]
  - Diffuse large B-cell lymphoma [Recovered/Resolved]
  - Diffuse large B-cell lymphoma [Recovered/Resolved]
  - Diffuse large B-cell lymphoma recurrent [Unknown]
  - Vasogenic cerebral oedema [Not Recovered/Not Resolved]
  - Vasogenic cerebral oedema [Recovered/Resolved]
  - Neurological symptom [Unknown]
  - Disease progression [Recovered/Resolved]
  - Disease progression [Not Recovered/Not Resolved]
  - Malignant neoplasm progression [Recovered/Resolved]
  - Malignant neoplasm progression [Recovered/Resolved]
  - Disorientation [Unknown]
  - Therapy partial responder [Unknown]
  - Therapeutic product effect incomplete [Unknown]
  - Off label use [Unknown]
  - Product use issue [Unknown]
